FAERS Safety Report 5690877-4 (Version None)
Quarter: 2008Q2

REPORT INFORMATION
  Report Type: 
  Country: None (occurrence: None)
  Receive Date: 20080401
  Receipt Date: 20080325
  Transmission Date: 20081010
  Serious: No
  Sender: FDA-Public Use
  Company Number: US-ALLERGAN-0802332US

PATIENT
  Sex: Male
  Weight: 74.83 kg

DRUGS (5)
  1. ACULAR [Suspect]
     Indication: PREOPERATIVE CARE
     Dosage: 1 GTT, SINGLE
     Route: 047
     Dates: start: 20080225, end: 20080225
  2. GLUCOPHAGE ER [Concomitant]
     Indication: DIABETES MELLITUS
     Dosage: 500 MG, TID
     Dates: start: 20060101
  3. TOPROL-XL [Concomitant]
     Indication: HYPERTENSION
     Dosage: 50 MG, QHS
  4. NIFEDIAC CC [Concomitant]
     Indication: HYPERTENSION
     Dosage: 30 MG, QAM
  5. AVODART [Concomitant]
     Indication: PROSTATIC DISORDER
     Dosage: 0.5 MG, MON, WED, FRI
     Dates: start: 20060101

REACTIONS (5)
  - BLOOD GLUCOSE INCREASED [None]
  - BLOOD PRESSURE INCREASED [None]
  - DIZZINESS [None]
  - FEELING HOT [None]
  - HYPERHIDROSIS [None]
